FAERS Safety Report 13585903 (Version 1)
Quarter: 2017Q2

REPORT INFORMATION
  Report Type: Spontaneous
  Country: BR (occurrence: BR)
  Receive Date: 20170526
  Receipt Date: 20170526
  Transmission Date: 20170830
  Serious: Yes (Other)
  Sender: FDA-Public Use
  Company Number: PHHY2017BR075376

PATIENT
  Sex: Female

DRUGS (1)
  1. ESTRADOT [Suspect]
     Active Substance: ESTRADIOL
     Indication: PRODUCT USED FOR UNKNOWN INDICATION
     Route: 065

REACTIONS (8)
  - Tremor [Unknown]
  - Liver disorder [Unknown]
  - Drug use disorder [Unknown]
  - Dizziness [Unknown]
  - Heart rate increased [Unknown]
  - Malaise [Unknown]
  - Chills [Unknown]
  - Body temperature increased [Unknown]
